FAERS Safety Report 15242191 (Version 1)
Quarter: 2018Q3

REPORT INFORMATION
  Report Type: Spontaneous
  Country: AU (occurrence: AU)
  Receive Date: 20180806
  Receipt Date: 20180806
  Transmission Date: 20181010
  Serious: Yes (Other)
  Sender: FDA-Public Use
  Company Number: AU-CONCORDIA PHARMACEUTICALS INC.-E2B_00010618

PATIENT
  Age: 11 Month
  Sex: Male

DRUGS (7)
  1. ETHAMBUTOL [Concomitant]
     Active Substance: ETHAMBUTOL HYDROCHLORIDE
     Indication: MENINGITIS TUBERCULOUS
  2. RIFAMPICIN [Concomitant]
     Active Substance: RIFAMPIN
     Indication: MENINGITIS TUBERCULOUS
  3. PYRAZINAMIDE. [Concomitant]
     Active Substance: PYRAZINAMIDE
     Indication: MENINGITIS TUBERCULOUS
  4. PREDNISOLONE. [Suspect]
     Active Substance: PREDNISOLONE
  5. ISONIAZID. [Concomitant]
     Active Substance: ISONIAZID
     Indication: MENINGITIS TUBERCULOUS
  6. PREDNISOLONE. [Suspect]
     Active Substance: PREDNISOLONE
     Indication: MENINGITIS TUBERCULOUS
  7. PREDNISOLONE. [Suspect]
     Active Substance: PREDNISOLONE
     Dosage: WEEKLY DOSE REDUCTION OVER 4 WEEKS

REACTIONS (3)
  - Facial paralysis [Recovered/Resolved]
  - Paradoxical drug reaction [Recovering/Resolving]
  - Vomiting [Recovering/Resolving]
